FAERS Safety Report 15393988 (Version 1)
Quarter: 2018Q3

REPORT INFORMATION
  Report Type: Spontaneous
  Country: US (occurrence: US)
  Receive Date: 20180917
  Receipt Date: 20180917
  Transmission Date: 20181010
  Serious: No
  Sender: FDA-Public Use
  Company Number: US-VIIV HEALTHCARE LIMITED-US2018GSK167564

PATIENT
  Sex: Male

DRUGS (1)
  1. ABACAVIR. [Suspect]
     Active Substance: ABACAVIR

REACTIONS (1)
  - Cardiovascular disorder [Unknown]
